FAERS Safety Report 13333504 (Version 2)
Quarter: 2017Q2

REPORT INFORMATION
  Report Type: Spontaneous
  Country: US (occurrence: US)
  Receive Date: 20170314
  Receipt Date: 20170410
  Transmission Date: 20170830
  Serious: Yes (Death)
  Sender: FDA-Public Use
  Company Number: US-LUNDBECK-DKLU2027666

PATIENT
  Age: 85 Year
  Sex: Female

DRUGS (3)
  1. NORTHERA [Suspect]
     Active Substance: DROXIDOPA
     Indication: ORTHOSTATIC HYPOTENSION
     Dosage: 200 MG AND 300 MG FOR TOTAL DOSE OF 500 MG
     Route: 048
     Dates: end: 20170304
  2. NORTHERA [Suspect]
     Active Substance: DROXIDOPA
     Dosage: 200 MG AND 300 MG FOR TOTAL DOSE OF 500 MG
     Route: 048
     Dates: end: 20170304
  3. NORTHERA [Suspect]
     Active Substance: DROXIDOPA
     Indication: AUTONOMIC NEUROPATHY
     Dosage: TITRATION COMPLETE
     Route: 065
     Dates: start: 201604

REACTIONS (1)
  - Death [Fatal]

NARRATIVE: CASE EVENT DATE: 20170304
